FAERS Safety Report 6809348-4 (Version None)
Quarter: 2010Q2

REPORT INFORMATION
  Report Type: 
  Country: None (occurrence: None)
  Receive Date: 20100630
  Receipt Date: 20100617
  Transmission Date: 20101027
  Serious: Yes (Hospitalization)
  Sender: FDA-Public Use
  Company Number: GB-ELI_LILLY_AND_COMPANY-GB201001002170

PATIENT
  Sex: Female

DRUGS (10)
  1. PEMETREXED [Suspect]
     Indication: NON-SMALL CELL LUNG CANCER
     Dosage: 1000 MG, UNKNOWN
     Route: 042
     Dates: start: 20091016, end: 20091106
  2. CISPLATIN [Suspect]
     Indication: NON-SMALL CELL LUNG CANCER
     Dosage: 149 MG, UNKNOWN
     Route: 042
     Dates: start: 20091016, end: 20091106
  3. DEXAMETHASONE [Concomitant]
     Dosage: 4 MG, 2/D FOR 3 DAYS AROUND TREATMENT
     Route: 048
  4. FOLIC ACID [Concomitant]
     Dosage: UNK, UNKNOWN
     Route: 048
     Dates: start: 20091009, end: 20091107
  5. VITAMIN B-12 [Concomitant]
     Dosage: 1000 UG, UNKNOWN
     Route: 030
     Dates: start: 20091009
  6. LANSOPRAZOLE [Concomitant]
     Indication: PROPHYLAXIS
  7. OXYCONTIN [Concomitant]
     Indication: PAIN
     Dates: start: 20091103
  8. OXYCODONE HCL [Concomitant]
     Indication: PAIN
     Dates: start: 20091103
  9. HYDROXYCHLOROQUINE SULFATE [Concomitant]
     Indication: SYSTEMIC LUPUS ERYTHEMATOSUS
     Dates: start: 20050101
  10. ACETAMINOPHEN [Concomitant]
     Indication: PAIN
     Dates: start: 20090930

REACTIONS (3)
  - DEHYDRATION [None]
  - URINARY TRACT INFECTION [None]
  - VOMITING [None]
